FAERS Safety Report 9174827 (Version 2)
Quarter: 2013Q1

REPORT INFORMATION
  Report Type: Spontaneous
  Country: VE (occurrence: VE)
  Receive Date: 20130320
  Receipt Date: 20130326
  Transmission Date: 20140127
  Serious: No
  Sender: FDA-Public Use
  Company Number: VE-PFIZER INC-2013091332

PATIENT
  Age: 63 Year
  Sex: Male

DRUGS (4)
  1. LIPITOR [Suspect]
     Dosage: 40 MG, DAILY
     Route: 048
     Dates: start: 201210, end: 201301
  2. LYRICA [Suspect]
     Dosage: 150 MG, 2X/DAY
     Route: 048
     Dates: start: 201210, end: 201301
  3. ENALAPRIL [Concomitant]
     Indication: HYPERTENSION
     Dosage: 20 MG, 1X/DAY
     Route: 048
     Dates: start: 2011
  4. DIOVAN HCT [Concomitant]
     Indication: HYPERTENSION
     Dosage: 300/12.5 MG, 1X/DAY
     Route: 048
     Dates: start: 2011

REACTIONS (1)
  - Local swelling [Not Recovered/Not Resolved]
